FAERS Safety Report 16906220 (Version 1)
Quarter: 2019Q4

REPORT INFORMATION
  Report Type: Spontaneous
  Country: DE (occurrence: DE)
  Receive Date: 20191011
  Receipt Date: 20191011
  Transmission Date: 20200122
  Serious: Yes (Life-Threatening, Hospitalization, Other)
  Sender: FDA-Public Use
  Company Number: DE-JNJFOC-20191006369

PATIENT
  Age: 84 Year
  Sex: Female
  Weight: 70 kg

DRUGS (5)
  1. RIVAROXABAN [Suspect]
     Active Substance: RIVAROXABAN
     Indication: ATRIAL FIBRILLATION
     Dosage: 15 MG, UNK
     Route: 048
  2. AMIODARON [AMIODARONE] [Concomitant]
     Active Substance: AMIODARONE
  3. METOPROLOL. [Concomitant]
     Active Substance: METOPROLOL
  4. CANDESARTAN. [Concomitant]
     Active Substance: CANDESARTAN
  5. TOREM [TORASEMIDE] [Concomitant]
     Active Substance: TORSEMIDE

REACTIONS (2)
  - Splenic haemorrhage [Recovering/Resolving]
  - Splenic rupture [Recovering/Resolving]

NARRATIVE: CASE EVENT DATE: 20190823
